FAERS Safety Report 4376521-7 (Version None)
Quarter: 2004Q2

REPORT INFORMATION
  Report Type: 
  Country: None (occurrence: None)
  Receive Date: 20040614
  Receipt Date: 20040610
  Transmission Date: 20050107
  Serious: Yes (Death, Hospitalization)
  Sender: FDA-Public Use
  Company Number: US-BRISTOL-MYERS SQUIBB COMPANY-12610978

PATIENT
  Age: 66 Year
  Sex: Male
  Weight: 83 kg

DRUGS (13)
  1. CISPLATIN [Suspect]
     Indication: PLEURAL MESOTHELIOMA
     Route: 042
     Dates: start: 20040212, end: 20040212
  2. PEMETREXED DISODIUM [Suspect]
     Indication: PLEURAL MESOTHELIOMA
     Route: 042
     Dates: start: 20040212, end: 20040212
  3. KYTRIL [Concomitant]
     Indication: PREMEDICATION
  4. DECADRON [Concomitant]
     Indication: PREMEDICATION
  5. COMPAZINE [Concomitant]
     Indication: NAUSEA
  6. FOLIC ACID [Concomitant]
     Indication: VITAMIN SUPPLEMENTATION
  7. NADOLOL [Concomitant]
     Indication: HYPERTENSION
  8. MEGESTROL [Concomitant]
     Indication: INCREASED APPETITE
  9. VITAMIN B-12 [Concomitant]
     Indication: VITAMIN SUPPLEMENTATION
  10. LIPITOR [Concomitant]
     Indication: BLOOD CHOLESTEROL INCREASED
  11. METOPROLOL TARTRATE [Concomitant]
     Indication: HYPERTENSION
  12. PHENERGAN [Concomitant]
  13. LOMOTIL [Concomitant]
     Indication: DIARRHOEA

REACTIONS (4)
  - DEEP VEIN THROMBOSIS [None]
  - DEHYDRATION [None]
  - FEBRILE NEUTROPENIA [None]
  - THERAPEUTIC AGENT TOXICITY [None]
